FAERS Safety Report 7460474-9 (Version None)
Quarter: 2011Q2

REPORT INFORMATION
  Report Type: 
  Country: None (occurrence: None)
  Receive Date: 20110505
  Receipt Date: 20110504
  Transmission Date: 20111010
  Serious: No
  Sender: FDA-Public Use
  Company Number: US-PFIZER INC-2011096302

PATIENT
  Sex: Male
  Weight: 9.07 kg

DRUGS (1)
  1. PEDIATRIC ADVIL [Suspect]
     Indication: PYREXIA
     Dosage: 1.25 MG, UNK
     Route: 048
     Dates: start: 20110430, end: 20110430

REACTIONS (1)
  - VOMITING [None]
